FAERS Safety Report 6206856-4 (Version None)
Quarter: 2009Q2

REPORT INFORMATION
  Report Type: 
  Country: None (occurrence: None)
  Receive Date: 20090528
  Receipt Date: 20090312
  Transmission Date: 20091009
  Serious: No
  Sender: FDA-Public Use
  Company Number: US-AMGEN-US338222

PATIENT
  Sex: Female
  Weight: 57.5 kg

DRUGS (11)
  1. NPLATE [Suspect]
     Indication: IDIOPATHIC THROMBOCYTOPENIC PURPURA
     Route: 058
     Dates: start: 20081023
  2. ALPRAZOLAM [Concomitant]
     Route: 048
     Dates: start: 20081023
  3. AMLODIPINE [Concomitant]
     Route: 048
     Dates: start: 20090115
  4. APAP TAB [Concomitant]
     Route: 048
     Dates: start: 20081118
  5. BUPROPION HCL [Concomitant]
     Route: 048
     Dates: start: 20081118
  6. FLUTICASONE/SALMETEROL [Concomitant]
     Route: 055
     Dates: start: 20081118
  7. LEVOTHYROXINE SODIUM [Concomitant]
     Route: 048
     Dates: start: 20080611
  8. OXYCODONE HCL [Concomitant]
     Route: 048
     Dates: start: 20081118
  9. SERTRALINE HCL [Concomitant]
     Route: 048
     Dates: start: 20081023
  10. WARFARIN [Concomitant]
     Route: 048
     Dates: start: 20081118
  11. TYLENOL [Concomitant]
     Route: 048

REACTIONS (3)
  - DRY EYE [None]
  - MYODESOPSIA [None]
  - VISION BLURRED [None]
